FAERS Safety Report 10738462 (Version 1)
Quarter: 2015Q1

REPORT INFORMATION
  Report Type: Spontaneous
  Country: US (occurrence: US)
  Receive Date: 20150126
  Receipt Date: 20150126
  Transmission Date: 20150721
  Serious: Yes (Other)
  Sender: FDA-Public Use
  Company Number: US-WATSON-2015-00725

PATIENT
  Age: 34 Year
  Sex: Female

DRUGS (4)
  1. ARIPIPRAZOLE. [Concomitant]
     Active Substance: ARIPIPRAZOLE
     Indication: BIPOLAR DISORDER
     Dosage: 15 MG, BID
     Route: 065
  2. ARIPIPRAZOLE. [Concomitant]
     Active Substance: ARIPIPRAZOLE
     Indication: NARCOLEPSY
  3. ESCITALOPRAM [Concomitant]
     Active Substance: ESCITALOPRAM OXALATE
     Indication: BIPOLAR DISORDER
     Dosage: 20 MG, DAILY
     Route: 065
  4. ZONISAMIDE (WATSON LABORATORIES) [Suspect]
     Active Substance: ZONISAMIDE
     Indication: PATHOLOGICAL GAMBLING
     Dosage: 25 MG, BID
     Route: 065

REACTIONS (2)
  - Product use issue [Recovered/Resolved]
  - Psychotic disorder [Recovered/Resolved]
